FAERS Safety Report 6692910-X (Version None)
Quarter: 2010Q2

REPORT INFORMATION
  Report Type: 
  Country: None (occurrence: None)
  Receive Date: 20100422
  Receipt Date: 20100421
  Transmission Date: 20101027
  Serious: Yes (Life-Threatening, Hospitalization)
  Sender: FDA-Public Use
  Company Number: IT-ROXANE LABORATORIES, INC.-2010-RO-00450RO

PATIENT
  Age: 57 Year
  Sex: Female

DRUGS (7)
  1. FLECAINIDE ACETATE [Suspect]
     Indication: SUPRAVENTRICULAR TACHYARRHYTHMIA
     Dosage: 100 MG
  2. FLECAINIDE ACETATE [Suspect]
  3. OXYGEN [Concomitant]
     Indication: DRUG TOXICITY
  4. ACTIVATED CHARCOAL [Concomitant]
     Indication: DRUG TOXICITY
     Dosage: 40 MG
  5. MAGNESIUM SULFATE [Concomitant]
     Indication: DRUG TOXICITY
     Dosage: 40 MG
  6. SODIUM BICARBONATE [Concomitant]
     Indication: DRUG TOXICITY
     Dosage: 150 MEQ
  7. SODIUM BICARBONATE [Concomitant]
     Dosage: 130 MEQ

REACTIONS (4)
  - DRUG TOXICITY [None]
  - ELECTROCARDIOGRAM QRS COMPLEX PROLONGED [None]
  - ELECTROCARDIOGRAM QT PROLONGED [None]
  - SUICIDE ATTEMPT [None]
